FAERS Safety Report 9378614 (Version 1)
Quarter: 2013Q2

REPORT INFORMATION
  Report Type: Spontaneous
  Country: None (occurrence: None)
  Receive Date: 20130626
  Receipt Date: 20130626
  Transmission Date: 20140414
  Serious: Yes (Other)
  Sender: FDA-Public Use
  Company Number: 2013/125

PATIENT
  Age: 74 Year
  Sex: Male

DRUGS (6)
  1. LEVETIRACETAM (NO PREF. NAME) [Suspect]
     Indication: EPILEPSY
     Route: 042
  2. PHENOBARBITAL (NO PREF. NAME) [Concomitant]
  3. ATORVASTATINE (NO PREF. NAME) [Concomitant]
  4. ACENOCOUMAROL (NO PREF. NAME) [Concomitant]
  5. ALPRAZOLAM (NO PREF. NAME) [Concomitant]
  6. ZOLPIDEM (NO PREF. NAME) [Concomitant]

REACTIONS (1)
  - Hypoglycaemia [None]
